FAERS Safety Report 21415647 (Version 1)
Quarter: 2022Q4

REPORT INFORMATION
  Report Type: Report from Study
  Country: CA (occurrence: CA)
  Receive Date: 20221006
  Receipt Date: 20221006
  Transmission Date: 20230113
  Serious: Yes (Other)
  Sender: FDA-Public Use
  Company Number: CA-JNJFOC-20220905336

PATIENT
  Age: 52 Year
  Sex: Male
  Weight: 59.020 kg

DRUGS (2)
  1. STELARA [Suspect]
     Active Substance: USTEKINUMAB
     Indication: Crohn^s disease
     Route: 058
     Dates: start: 20220512
  2. STELARA [Suspect]
     Active Substance: USTEKINUMAB
     Dosage: PARTIAL HARVEY-BRADSHAW COMPLETED, 4TH INJECTION
     Route: 058
     Dates: start: 20220913

REACTIONS (9)
  - Intestinal obstruction [Recovered/Resolved]
  - Stoma creation [Unknown]
  - Stoma obstruction [Unknown]
  - General physical health deterioration [Unknown]
  - Abdominal pain [Unknown]
  - Frequent bowel movements [Unknown]
  - Diarrhoea [Unknown]
  - Drug ineffective [Unknown]
  - Off label use [Unknown]

NARRATIVE: CASE EVENT DATE: 20220101
